FAERS Safety Report 7923391-3 (Version None)
Quarter: 2011Q4

REPORT INFORMATION
  Report Type: 
  Country: None (occurrence: None)
  Receive Date: 20111117
  Receipt Date: 20110202
  Transmission Date: 20120403
  Serious: Yes (Other)
  Sender: FDA-Public Use
  Company Number: US-AMGEN-USASP2011005752

PATIENT
  Age: 65 Year
  Sex: Female

DRUGS (2)
  1. ENBREL [Suspect]
     Indication: PSORIATIC ARTHROPATHY
     Dosage: 50 MG, QWK
     Dates: start: 20091014
  2. ENBREL [Suspect]
     Indication: PSORIASIS

REACTIONS (10)
  - RASH [None]
  - ARTHRALGIA [None]
  - NAUSEA [None]
  - BRONCHITIS [None]
  - URTICARIA [None]
  - BACK PAIN [None]
  - ROAD TRAFFIC ACCIDENT [None]
  - PRURITUS [None]
  - VERTIGO [None]
  - NECK PAIN [None]
